FAERS Safety Report 8369510-9 (Version None)
Quarter: 2012Q2

REPORT INFORMATION
  Report Type: 
  Country: None (occurrence: None)
  Receive Date: 20120518
  Receipt Date: 20120509
  Transmission Date: 20120825
  Serious: Yes (Other)
  Sender: FDA-Public Use
  Company Number: US-JNJFOC-20120409977

PATIENT
  Sex: Female
  Weight: 61.24 kg

DRUGS (5)
  1. TRAMADOL HYDROCHLORIDE [Suspect]
     Indication: SHOULDER OPERATION
     Route: 048
     Dates: start: 20120101
  2. NUCYNTA [Suspect]
     Indication: SHOULDER OPERATION
     Route: 048
     Dates: start: 20120306, end: 20120101
  3. SYNTHROID [Concomitant]
     Indication: HYPOTHYROIDISM
     Dosage: DAILY
     Route: 048
     Dates: start: 20030101
  4. VIVELLE [Concomitant]
     Indication: HORMONE REPLACEMENT THERAPY
     Dosage: TWO IN ONE WEEK
     Route: 062
  5. LISINOPRIL [Concomitant]
     Indication: BLOOD PRESSURE
     Dosage: DAILY
     Route: 048
     Dates: start: 20090101

REACTIONS (5)
  - ABASIA [None]
  - TREATMENT NONCOMPLIANCE [None]
  - PRODUCT QUALITY ISSUE [None]
  - DIZZINESS [None]
  - BLOOD PRESSURE DECREASED [None]
